FAERS Safety Report 4279541-6 (Version None)
Quarter: 2004Q1

REPORT INFORMATION
  Report Type: 
  Country: None (occurrence: None)
  Receive Date: 20040123
  Receipt Date: 20040115
  Transmission Date: 20041129
  Serious: Yes (Other)
  Sender: FDA-Public Use
  Company Number: KDL063857

PATIENT
  Age: 57 Year
  Sex: Female

DRUGS (1)
  1. EPOGEN [Suspect]
     Indication: RENAL FAILURE CHRONIC
     Dosage: 40000 U, 1 IN 2 WEEKS
     Dates: start: 20000101

REACTIONS (4)
  - BREAST CANCER [None]
  - HAEMOGLOBIN DECREASED [None]
  - PYREXIA [None]
  - THERAPEUTIC RESPONSE DECREASED [None]
